FAERS Safety Report 4693027-6 (Version None)
Quarter: 2005Q2

REPORT INFORMATION
  Report Type: 
  Country: None (occurrence: None)
  Receive Date: 20050614
  Receipt Date: 20050521
  Transmission Date: 20051028
  Serious: Yes (Other)
  Sender: FDA-Public Use
  Company Number: C05-052

PATIENT
  Age: 90 Year
  Sex: Female
  Weight: 44.4525 kg

DRUGS (1)
  1. MIRTAZAPINE [Suspect]
     Indication: DEPRESSION
     Dosage: 1 TAB DAILY

REACTIONS (1)
  - HALLUCINATION [None]
